FAERS Safety Report 24585984 (Version 3)
Quarter: 2024Q4

REPORT INFORMATION
  Report Type: Spontaneous
  Country: ES (occurrence: ES)
  Receive Date: 20241106
  Receipt Date: 20241122
  Transmission Date: 20250115
  Serious: No
  Sender: TRAVERE THERAPEUTICS
  Company Number: ES-Vifor (International) Inc.-VIT-2024-08628

PATIENT
  Age: 55 Year
  Sex: Female
  Weight: 70 kg

DRUGS (4)
  1. FILSPARI [Suspect]
     Active Substance: SPARSENTAN
     Indication: IgA nephropathy
     Dates: end: 202407
  2. FILSPARI [Suspect]
     Active Substance: SPARSENTAN
     Indication: Proteinuria
     Dosage: DOSE INCREASE TO 400 MG
     Dates: start: 20240724, end: 2024
  3. FILSPARI [Suspect]
     Active Substance: SPARSENTAN
     Dosage: DOSE WAS LOWERED AGAIN TO 200 MG, DATE OF THE LAST ADMINISTRATION BEFORE THE EVENT WAS ON 01-AUG-...
     Dates: start: 20240909
  4. OMEPRAZOLE [Concomitant]
     Active Substance: OMEPRAZOLE
     Dosage: STOMACH PROTECTOR, ONGOING
     Route: 050
     Dates: start: 20240909

REACTIONS (5)
  - Product availability issue [Unknown]
  - Dyspepsia [Unknown]
  - Therapy cessation [Unknown]
  - Drug intolerance [Recovered/Resolved]
  - Hypotension [Recovered/Resolved]

NARRATIVE: CASE EVENT DATE: 20240101
